FAERS Safety Report 9458923 (Version 7)
Quarter: 2015Q1

REPORT INFORMATION
  Report Type: Spontaneous
  Country: US (occurrence: US)
  Receive Date: 20130814
  Receipt Date: 20150209
  Transmission Date: 20150721
  Serious: Yes (Hospitalization, Other)
  Sender: FDA-Public Use
  Company Number: US-009507513-1308USA003226

PATIENT
  Sex: Male
  Weight: 61.3 kg

DRUGS (5)
  1. PREDNISONE. [Concomitant]
     Active Substance: PREDNISONE
     Dosage: 2 MG, QD
     Dates: start: 1981
  2. VITAMINS (UNSPECIFIED) [Concomitant]
     Active Substance: VITAMINS
     Indication: VITAMIN SUPPLEMENTATION
     Dosage: UNK, BID
     Route: 048
     Dates: start: 1985
  3. CALCIUM (UNSPECIFIED) [Concomitant]
     Active Substance: CALCIUM
     Indication: ROUTINE HEALTH MAINTENANCE
     Dosage: 1200 MG, QD
     Route: 048
     Dates: start: 1985
  4. FOSAMAX [Suspect]
     Active Substance: ALENDRONATE SODIUM
     Indication: OSTEOPOROSIS
     Dosage: 10 MG, UNK
     Route: 048
     Dates: start: 19951030, end: 200802
  5. ALENDRONATE SODIUM. [Suspect]
     Active Substance: ALENDRONATE SODIUM
     Indication: OSTEOPOROSIS
     Dosage: 70 MG, UNK
     Route: 048
     Dates: start: 200802, end: 201011

REACTIONS (22)
  - IIIrd nerve paralysis [Unknown]
  - Chest pain [Unknown]
  - Cerumen impaction [Unknown]
  - Foot fracture [Unknown]
  - Coeliac disease [Unknown]
  - Arthralgia [Not Recovered/Not Resolved]
  - Dyspepsia [Unknown]
  - Arthralgia [Not Recovered/Not Resolved]
  - Intramedullary rod insertion [Unknown]
  - Paronychia [Recovering/Resolving]
  - Seborrhoeic keratosis [Unknown]
  - Polyarteritis nodosa [Unknown]
  - Chest pain [Unknown]
  - Musculoskeletal pain [Unknown]
  - Cough [Unknown]
  - Gastrooesophageal reflux disease [Unknown]
  - Adverse event [Unknown]
  - Hypogonadism male [Unknown]
  - Lung disorder [Unknown]
  - Diarrhoea [Not Recovered/Not Resolved]
  - Femur fracture [Unknown]
  - Sinus disorder [Unknown]

NARRATIVE: CASE EVENT DATE: 1998
